FAERS Safety Report 11142833 (Version 1)
Quarter: 2015Q2

REPORT INFORMATION
  Report Type: Spontaneous
  Country: US (occurrence: US)
  Receive Date: 20150528
  Receipt Date: 20150528
  Transmission Date: 20150821
  Serious: Yes (Death)
  Sender: FDA-Public Use
  Company Number: US-MYLANLABS-2015M1017408

PATIENT

DRUGS (4)
  1. MEROPENEM. [Suspect]
     Active Substance: MEROPENEM
     Indication: VARICELLA ZOSTER PNEUMONIA
     Dosage: UNK
  2. VARICELLA ZOSTER IMMUNOGLOBULIN [Suspect]
     Active Substance: HUMAN VARICELLA-ZOSTER IMMUNE GLOBULIN
     Indication: VARICELLA ZOSTER PNEUMONIA
  3. VANCOMYCIN [Suspect]
     Active Substance: VANCOMYCIN
     Indication: VARICELLA ZOSTER PNEUMONIA
     Dosage: UNK
  4. ACICLOVIR [Suspect]
     Active Substance: ACYCLOVIR
     Indication: VARICELLA ZOSTER PNEUMONIA
     Dosage: UNK

REACTIONS (1)
  - Drug ineffective [Fatal]
